FAERS Safety Report 17288030 (Version 1)
Quarter: 2020Q1

REPORT INFORMATION
  Report Type: Spontaneous
  Country: US (occurrence: US)
  Receive Date: 20200120
  Receipt Date: 20200120
  Transmission Date: 20200409
  Serious: No
  Sender: FDA-Public Use
  Company Number: US-SHIRE-US202001782

PATIENT
  Age: 18 Year
  Sex: Female
  Weight: 48.53 kg

DRUGS (4)
  1. EPIDUO FORTE [Concomitant]
     Active Substance: ADAPALENE\BENZOYL PEROXIDE
     Indication: ACNE
  2. IRON [Concomitant]
     Active Substance: IRON
     Indication: ANAEMIA
  3. PREDNISONE. [Concomitant]
     Active Substance: PREDNISONE
     Indication: INFLAMMATION
  4. PENTASA [Suspect]
     Active Substance: MESALAMINE
     Indication: COLITIS
     Dosage: 500 MILLIGRAM, 2X/DAY:BID
     Route: 065
     Dates: start: 20191126

REACTIONS (1)
  - Product residue present [Not Recovered/Not Resolved]
